FAERS Safety Report 12908954 (Version 1)
Quarter: 2016Q4

REPORT INFORMATION
  Report Type: Spontaneous
  Country: US (occurrence: US)
  Receive Date: 20161103
  Receipt Date: 20161103
  Transmission Date: 20170207
  Serious: No
  Sender: FDA-Public Use
  Company Number: US-JAZZ-2016-US-016672

PATIENT
  Sex: Female
  Weight: 104.31 kg

DRUGS (15)
  1. OMEGA 3 FISH OIL [Concomitant]
     Active Substance: FISH OIL\OMEGA-3 FATTY ACIDS
  2. LORAZEPAM. [Concomitant]
     Active Substance: LORAZEPAM
  3. LEXAPRO [Concomitant]
     Active Substance: ESCITALOPRAM OXALATE
  4. XYREM [Suspect]
     Active Substance: SODIUM OXYBATE
     Dosage: 4 G, BID
     Route: 048
     Dates: start: 201212
  5. FEVERFEW [Concomitant]
     Active Substance: FEVERFEW
  6. MULTIVITAMIN [Concomitant]
     Active Substance: VITAMINS
  7. PRISTIQ EXTENDED-RELEASE [Concomitant]
     Active Substance: DESVENLAFAXINE SUCCINATE
  8. XYREM [Suspect]
     Active Substance: SODIUM OXYBATE
     Dosage: BETWEEN 3.75 TO 4.5 G, BID
     Route: 048
  9. LUNESTA [Concomitant]
     Active Substance: ESZOPICLONE
  10. BUTTER BURR [Concomitant]
  11. COENZYME Q10 [Concomitant]
     Active Substance: UBIDECARENONE
  12. XYREM [Suspect]
     Active Substance: SODIUM OXYBATE
     Indication: INSOMNIA
     Dosage: 3 G, BID
     Route: 048
     Dates: start: 201205, end: 201212
  13. TYLENOL WITH CODEINE [Concomitant]
     Active Substance: ACETAMINOPHEN\CODEINE PHOSPHATE
  14. VERAPAMIL ER PM [Concomitant]
  15. ZOMIG ZMT [Concomitant]
     Active Substance: ZOLMITRIPTAN

REACTIONS (1)
  - Initial insomnia [Not Recovered/Not Resolved]
